FAERS Safety Report 10891991 (Version 2)
Quarter: 2015Q2

REPORT INFORMATION
  Report Type: Spontaneous
  Country: US (occurrence: US)
  Receive Date: 20150306
  Receipt Date: 20150427
  Transmission Date: 20150821
  Serious: Yes (Death, Hospitalization, Other)
  Sender: FDA-Public Use
  Company Number: US-009507513-1503USA002087

PATIENT
  Sex: Female
  Weight: 55.78 kg

DRUGS (1)
  1. JANUVIA [Suspect]
     Active Substance: SITAGLIPTIN PHOSPHATE
     Indication: TYPE 2 DIABETES MELLITUS
     Dosage: 100 MG, QD
     Route: 048
     Dates: start: 20091016, end: 20121205

REACTIONS (22)
  - Metastases to peritoneum [Unknown]
  - Pulmonary granuloma [Unknown]
  - Pancreatic carcinoma metastatic [Unknown]
  - Malignant ascites [Unknown]
  - Skin neoplasm excision [Unknown]
  - Dizziness [Unknown]
  - Metastases to liver [Unknown]
  - Blood pressure decreased [Unknown]
  - Dementia [Unknown]
  - Skin cancer [Unknown]
  - Small intestinal obstruction [Unknown]
  - Thrombosis [Unknown]
  - Pneumonia [Unknown]
  - Constipation [Unknown]
  - Coronary artery disease [Unknown]
  - Death [Fatal]
  - Loss of consciousness [Unknown]
  - Aspiration [Unknown]
  - Myocardial infarction [Unknown]
  - Stent placement [Unknown]
  - Hyperlipidaemia [Unknown]
  - Blood glucose increased [Unknown]

NARRATIVE: CASE EVENT DATE: 2011
